FAERS Safety Report 8608913-1 (Version None)
Quarter: 2012Q3

REPORT INFORMATION
  Report Type: 
  Country: None (occurrence: None)
  Receive Date: 20120821
  Receipt Date: 20120806
  Transmission Date: 20120928
  Serious: Yes (Other)
  Sender: FDA-Public Use
  Company Number: NL-WATSON-2012-14345

PATIENT
  Age: 82 Year
  Sex: Female

DRUGS (1)
  1. TERBINAFINE HCL [Suspect]
     Indication: ONYCHOMYCOSIS
     Dosage: 250 MG, DAILY
     Route: 048

REACTIONS (4)
  - INSOMNIA [None]
  - HEARING IMPAIRED [None]
  - ASTHENIA [None]
  - HEADACHE [None]
